FAERS Safety Report 19626279 (Version 1)
Quarter: 2021Q3

REPORT INFORMATION
  Report Type: Other
  Country: GB (occurrence: GB)
  Receive Date: 20210729
  Receipt Date: 20210729
  Transmission Date: 20211014
  Serious: Yes (Other)
  Sender: FDA-Public Use
  Company Number: GB-MACLEODS PHARMA UK LTD-MAC2021032015

PATIENT

DRUGS (8)
  1. ISPAGHULA EXTRACT\PSYLLIUM [Concomitant]
     Active Substance: HERBALS\PLANTAGO OVATA SEED\PLANTAGO SEED
     Indication: CONSTIPATION
     Dosage: 3.5 GRAM, BID, EFFERVESCENT GRANULES
     Route: 065
     Dates: start: 20210624
  2. LAXIDO [Concomitant]
     Active Substance: POLYETHYLENE GLYCOL 3350\POTASSIUM CHLORIDE\SODIUM BICARBONATE\SODIUM CHLORIDE
     Indication: PRODUCT USED FOR UNKNOWN INDICATION
     Dosage: 1 DOSAGE FORM, QD
     Route: 048
     Dates: start: 20210506
  3. CALCICHEW D3 [Concomitant]
     Active Substance: CALCIUM\CHOLECALCIFEROL
     Indication: MUSCULOSKELETAL DISORDER PROPHYLAXIS
     Dosage: 1 DOSAGE FORM, QD, FOR BONE PROTECTION, CONCENTRATE (POWDER FORM)
     Route: 048
     Dates: start: 20210713
  4. NEBIVOLOL. [Concomitant]
     Active Substance: NEBIVOLOL
     Indication: PRODUCT USED FOR UNKNOWN INDICATION
     Dosage: 7.5 MILLIGRAM, QD
     Route: 065
     Dates: start: 20210514
  5. APIXABAN [Concomitant]
     Active Substance: APIXABAN
     Indication: CARDIOVASCULAR EVENT PROPHYLAXIS
     Dosage: 2.5 MILLIGRAM, BID, FOR STROKE PREVENTION IN ATRIAL FIBRILLATION
     Route: 065
     Dates: start: 20210427
  6. DIGOXIN. [Concomitant]
     Active Substance: DIGOXIN
     Indication: CARDIOVASCULAR EVENT PROPHYLAXIS
     Dosage: 187.5 MICROGRAM, QD, 1 EVERY MORNING FOR ATRIAL FIBRILLATION
     Route: 065
     Dates: start: 20210427
  7. FERROUS FUMARATE [Concomitant]
     Active Substance: FERROUS FUMARATE
     Indication: PRODUCT USED FOR UNKNOWN INDICATION
     Dosage: 210 MILLIGRAM, BID
     Route: 065
     Dates: start: 20210514
  8. DONEPEZIL. [Suspect]
     Active Substance: DONEPEZIL
     Indication: PRODUCT USED FOR UNKNOWN INDICATION
     Dosage: 10 MILLIGRAM
     Route: 065
     Dates: end: 20210713

REACTIONS (4)
  - Urinary incontinence [Recovering/Resolving]
  - Musculoskeletal stiffness [Recovering/Resolving]
  - Sleep disorder [Recovering/Resolving]
  - Headache [Recovering/Resolving]

NARRATIVE: CASE EVENT DATE: 20210615
